FAERS Safety Report 8339497-3 (Version None)
Quarter: 2012Q2

REPORT INFORMATION
  Report Type: 
  Country: None (occurrence: None)
  Receive Date: 20120502
  Receipt Date: 20120418
  Transmission Date: 20120825
  Serious: Yes (Other)
  Sender: FDA-Public Use
  Company Number: 1262540

PATIENT
  Age: 12 Year
  Sex: Male
  Weight: 36 kg

DRUGS (37)
  1. FENTANIDINE ISETHIONATE [Concomitant]
  2. RANITIDINE [Concomitant]
  3. ACETAMINOPHEN [Concomitant]
  4. DIPHENHYDRAMINE HYDROCHLORIDE [Concomitant]
  5. DOXORUBICIN HCL [Concomitant]
  6. HYDROCORTISONE [Concomitant]
  7. METHYLPHENIDATE [Concomitant]
  8. VINCRISTINE SULFATE [Suspect]
     Indication: PRODUCT USED FOR UNKNOWN INDICATION
     Dosage: 2MG, CYCLICAL, INTRAVENOUS
     Route: 042
  9. SULFAMETHOXAZOLE AND TRIMETHOPRIM [Concomitant]
  10. CYTARABINE [Concomitant]
  11. FLUCONAZOLE [Concomitant]
  12. ELSPAR [Concomitant]
  13. METOCLOPRAMIDE [Concomitant]
  14. MIRTAZAPINE [Concomitant]
  15. ALLOPURINOL [Concomitant]
  16. ALTEFLASE [Concomitant]
  17. DEXAMETHASONE [Concomitant]
  18. FOLIC ACID [Concomitant]
  19. MELATONIN [Concomitant]
  20. MERCAPTOPURINE [Concomitant]
  21. MINERAL OIL EMULSION [Concomitant]
  22. NYSTATIN [Concomitant]
  23. TIMENTIN [Concomitant]
  24. ONDANSETRON [Concomitant]
  25. PHYTONADIONE [Concomitant]
  26. PREDNISONE [Concomitant]
  27. ZINECARD [Concomitant]
  28. CESAMET [Concomitant]
  29. DIMENHYDRINATE [Concomitant]
  30. FUROSEMIDE [Concomitant]
  31. LANSOPRAZOLE [Concomitant]
  32. METHOTREXATE [Concomitant]
  33. TOBRAMYCIN [Concomitant]
  34. CODEINE SULFATE [Concomitant]
  35. DOCUSATE SODIUM [Concomitant]
  36. LORAZEPAM [Concomitant]
  37. METHYLPREDNISOLONE [Concomitant]

REACTIONS (1)
  - NEUROPATHY PERIPHERAL [None]
